FAERS Safety Report 11877067 (Version 2)
Quarter: 2016Q1

REPORT INFORMATION
  Report Type: Spontaneous
  Country: JP (occurrence: JP)
  Receive Date: 20151229
  Receipt Date: 20160127
  Transmission Date: 20160526
  Serious: Yes (Hospitalization)
  Sender: FDA-Public Use
  Company Number: JP-EISAI MEDICAL RESEARCH-EC-2015-013194

PATIENT
  Age: 78 Year

DRUGS (9)
  1. SALAGEN [Suspect]
     Active Substance: PILOCARPINE HYDROCHLORIDE
     Route: 048
     Dates: start: 2013
  2. SALIGREN [Concomitant]
     Indication: SJOGREN^S SYNDROME
     Dosage: UNKNOWN
     Route: 048
     Dates: end: 20150706
  3. SALAGEN [Suspect]
     Active Substance: PILOCARPINE HYDROCHLORIDE
     Route: 048
     Dates: end: 20150405
  4. GASLON [Concomitant]
     Active Substance: IRSOGLADINE MALEATE
     Indication: OROPHARYNGEAL DISCOMFORT
     Dosage: UNKNOWN
     Route: 048
     Dates: start: 20150406
  5. SALAGEN [Suspect]
     Active Substance: PILOCARPINE HYDROCHLORIDE
     Indication: SJOGREN^S SYNDROME
     Dosage: UNKNOWN
     Route: 048
     Dates: start: 20100816, end: 2013
  6. SALAGEN [Suspect]
     Active Substance: PILOCARPINE HYDROCHLORIDE
     Route: 048
     Dates: start: 20150406, end: 20151102
  7. PROMAC [Concomitant]
     Active Substance: NITROFURANTOIN
     Indication: PRODUCT USED FOR UNKNOWN INDICATION
     Dosage: UNKNOWN
     Route: 048
  8. DIOVAN [Concomitant]
     Active Substance: VALSARTAN
     Indication: HYPERTENSION
     Dosage: UNKNOWN
     Route: 048
     Dates: start: 2013
  9. CEREKINON [Concomitant]
     Active Substance: TRIMEBUTINE
     Indication: PRODUCT USED FOR UNKNOWN INDICATION
     Dosage: UNKNOWN
     Route: 048

REACTIONS (1)
  - Interstitial lung disease [Recovered/Resolved]

NARRATIVE: CASE EVENT DATE: 20151102
